FAERS Safety Report 6226024-X (Version None)
Quarter: 2009Q2

REPORT INFORMATION
  Report Type: 
  Country: None (occurrence: None)
  Receive Date: 20090612
  Receipt Date: 20090605
  Transmission Date: 20091009
  Serious: Yes (Life-Threatening)
  Sender: FDA-Public Use
  Company Number: DE-TEVA-197467ISR

PATIENT
  Sex: Female
  Weight: 86 kg

DRUGS (1)
  1. SIMVASTATIN [Suspect]
     Indication: HYPERCHOLESTEROLAEMIA
     Route: 048
     Dates: start: 20061001, end: 20080130

REACTIONS (5)
  - DERMATOMYOSITIS [None]
  - MYOSCLEROSIS [None]
  - PETECHIAE [None]
  - SCLERODERMA [None]
  - SKIN INDURATION [None]
